FAERS Safety Report 8186089-5 (Version None)
Quarter: 2012Q1

REPORT INFORMATION
  Report Type: 
  Country: None (occurrence: None)
  Receive Date: 20120306
  Receipt Date: 20120227
  Transmission Date: 20120608
  Serious: No
  Sender: FDA-Public Use
  Company Number: US-BIOGENIDEC-2012BI007563

PATIENT
  Sex: Female

DRUGS (1)
  1. TYSABRI [Suspect]
     Indication: MULTIPLE SCLEROSIS
     Route: 042
     Dates: start: 20111018

REACTIONS (17)
  - BACK PAIN [None]
  - MUSCLE SPASMS [None]
  - POLLAKIURIA [None]
  - NECK PAIN [None]
  - NASOPHARYNGITIS [None]
  - HYPOAESTHESIA [None]
  - MEMORY IMPAIRMENT [None]
  - INSOMNIA [None]
  - ASTHMA [None]
  - PARAESTHESIA [None]
  - RASH PAPULAR [None]
  - ALOPECIA [None]
  - BRONCHITIS [None]
  - HYPERTENSION [None]
  - FALL [None]
  - NERVOUSNESS [None]
  - STRESS [None]
